FAERS Safety Report 11402107 (Version 1)
Quarter: 2015Q3

REPORT INFORMATION
  Report Type: Spontaneous
  Country: US (occurrence: US)
  Receive Date: 20150821
  Receipt Date: 20150821
  Transmission Date: 20151125
  Serious: No
  Sender: FDA-Public Use
  Company Number: US-ROCHE-1305387

PATIENT
  Sex: Male

DRUGS (2)
  1. PEGASYS [Suspect]
     Active Substance: PEGINTERFERON ALFA-2A
     Indication: HEPATITIS C
     Route: 058
     Dates: start: 20130404
  2. RIBASPHERE [Suspect]
     Active Substance: RIBAVIRIN
     Indication: HEPATITIS C
     Dosage: 600 MG IN THE MORNING AND 400 MG IN THE EVENING
     Route: 065

REACTIONS (6)
  - Dyspnoea [Unknown]
  - Pyrexia [Unknown]
  - Muscle spasms [Unknown]
  - Insomnia [Unknown]
  - Constipation [Unknown]
  - Nausea [Unknown]
